FAERS Safety Report 13496491 (Version 1)
Quarter: 2017Q2

REPORT INFORMATION
  Report Type: Spontaneous
  Country: US (occurrence: US)
  Receive Date: 20170428
  Receipt Date: 20170428
  Transmission Date: 20170830
  Serious: Yes (Life-Threatening)
  Sender: FDA-Public Use
  Company Number: None

PATIENT
  Age: 48 Year
  Sex: Male
  Weight: 73.35 kg

DRUGS (1)
  1. GUANFACINE. [Suspect]
     Active Substance: GUANFACINE
     Indication: SLEEP DISORDER
     Dosage: ?          QUANTITY:1 TABLET(S);?
     Route: 048
     Dates: start: 20170421, end: 20170423

REACTIONS (10)
  - Hallucination [None]
  - Unevaluable event [None]
  - Delusion [None]
  - Paraesthesia [None]
  - Insomnia [None]
  - Choking [None]
  - Suicidal ideation [None]
  - Mood swings [None]
  - Dry mouth [None]
  - Heart rate increased [None]

NARRATIVE: CASE EVENT DATE: 20170423
